FAERS Safety Report 8844976 (Version 2)
Quarter: 2012Q4

REPORT INFORMATION
  Report Type: 
  Country: TR (occurrence: TR)
  Receive Date: 20121017
  Receipt Date: 20121027
  Transmission Date: 20130627
  Serious: Yes (Hospitalization, Other)
  Sender: FDA-Public Use
  Company Number: TR-009507513-1210TUR004400

PATIENT
  Age: 30 Year
  Sex: Female
  Weight: 67 kg

DRUGS (4)
  1. REMERON [Suspect]
     Indication: DEPRESSION
     Dosage: 30 mg, qd
     Route: 048
     Dates: start: 201101, end: 201104
  2. PAROXETINE [Interacting]
     Indication: DEPRESSION
     Dosage: 20 mg, qd
     Route: 048
     Dates: start: 201101, end: 201104
  3. FLUTICASONE PROPIONATE [Interacting]
     Indication: ASTHMA
     Dosage: 500 Microgram, bid
     Route: 055
     Dates: start: 201101, end: 201104
  4. CORTICOTROPIN [Concomitant]
     Indication: DIAGNOSTIC PROCEDURE
     Dosage: UNK

REACTIONS (7)
  - Cushing^s syndrome [Recovering/Resolving]
  - Skin striae [Recovering/Resolving]
  - Hirsutism [Recovering/Resolving]
  - Adrenocorticotropic hormone deficiency [Recovering/Resolving]
  - Hypothalamo-pituitary disorder [Unknown]
  - Asthenia [Recovering/Resolving]
  - Weight increased [Recovering/Resolving]
